FAERS Safety Report 7437630-9 (Version None)
Quarter: 2011Q2

REPORT INFORMATION
  Report Type: 
  Country: None (occurrence: None)
  Receive Date: 20110426
  Receipt Date: 20110414
  Transmission Date: 20111010
  Serious: Yes (Hospitalization)
  Sender: FDA-Public Use
  Company Number: FR-ROCHE-754480

PATIENT
  Sex: Female
  Weight: 57 kg

DRUGS (9)
  1. TRASTUZUMAB [Suspect]
     Dosage: LOADING DOSE.
     Route: 042
     Dates: start: 20100401
  2. TRASTUZUMAB [Suspect]
     Dosage: CYCLE 14, 6MG/KG, MAINTANANCE DOSE APPROXIMATELY AFTER 21 DAYS.
     Route: 042
     Dates: start: 20100422, end: 20110203
  3. CAPECITABINE [Suspect]
     Dosage: LAST DOSE PRIOR TO SAE: 26 JANUARY 2011.
     Route: 048
     Dates: start: 20110118, end: 20110203
  4. CLARITIN [Concomitant]
     Dates: start: 20110113, end: 20110113
  5. CLARITIN [Concomitant]
     Dates: start: 20110203, end: 20110203
  6. AUGMENTIN [Concomitant]
     Dates: start: 20110108
  7. ZOMETA [Concomitant]
     Dates: start: 20110113, end: 20110113
  8. CAPECITABINE [Suspect]
     Dosage: FREQUENCY: DAILY.LAST DOSE PRIOR TO SAE 30 DECEMBER 2010.
     Route: 048
     Dates: start: 20100401, end: 20110114
  9. DAFALGAN [Concomitant]
     Dates: start: 20101216

REACTIONS (1)
  - DELIRIUM [None]
